FAERS Safety Report 24796616 (Version 11)
Quarter: 2025Q2

REPORT INFORMATION
  Report Type: Spontaneous
  Country: PL (occurrence: PL)
  Receive Date: 20250101
  Receipt Date: 20250403
  Transmission Date: 20250717
  Serious: Yes (Hospitalization, Other)
  Sender: MYLAN
  Company Number: PL-USP-ICSR-2024-02-08-09-34-42-48-49-79-86-96-10

PATIENT
  Age: 36 Year
  Sex: Female

DRUGS (38)
  1. PREGABALIN [Suspect]
     Active Substance: PREGABALIN
     Indication: Product used for unknown indication
  2. CLINDAMYCIN [Suspect]
     Active Substance: CLINDAMYCIN
     Indication: Toothache
  3. ESCITALOPRAM [Interacting]
     Active Substance: ESCITALOPRAM OXALATE
     Indication: Depression
     Dosage: 10 MILLIGRAM, QD (AT NIGHT)
  4. ESCITALOPRAM [Interacting]
     Active Substance: ESCITALOPRAM OXALATE
     Indication: Insomnia
  5. DOXYLAMINE [Interacting]
     Active Substance: DOXYLAMINE
     Indication: Insomnia
     Dosage: 25 MILLIGRAM, QD (AT NIGHT)
  6. DOXYLAMINE [Interacting]
     Active Substance: DOXYLAMINE
     Indication: Depression
  7. DOXYLAMINE [Interacting]
     Active Substance: DOXYLAMINE
     Indication: Sleep disorder
  8. IBUPROFEN [Suspect]
     Active Substance: IBUPROFEN
     Indication: Toothache
  9. BUPRENORPHINE [Suspect]
     Active Substance: BUPRENORPHINE
     Indication: Toothache
  10. DIAZEPAM [Suspect]
     Active Substance: DIAZEPAM
     Indication: Toothache
  11. DICLOFENAC [Suspect]
     Active Substance: DICLOFENAC
     Indication: Toothache
  12. AMOXICILLIN [Suspect]
     Active Substance: AMOXICILLIN
     Indication: Toothache
  13. ACETAMINOPHEN\CODEINE PHOSPHATE [Suspect]
     Active Substance: ACETAMINOPHEN\CODEINE PHOSPHATE
     Indication: Toothache
  14. BENZYDAMINE [Suspect]
     Active Substance: BENZYDAMINE
     Indication: Toothache
  15. DICLOFENAC [Suspect]
     Active Substance: DICLOFENAC
     Indication: Toothache
  16. FLURBIPROFEN [Suspect]
     Active Substance: FLURBIPROFEN
     Indication: Toothache
  17. CHLORHEXIDINE [Suspect]
     Active Substance: CHLORHEXIDINE
     Indication: Toothache
  18. LIDOCAINE HYDROCHLORIDE [Suspect]
     Active Substance: LIDOCAINE HYDROCHLORIDE
     Indication: Toothache
  19. MORPHINE [Suspect]
     Active Substance: MORPHINE
     Indication: Toothache
  20. ACETAMINOPHEN [Suspect]
     Active Substance: ACETAMINOPHEN
     Indication: Toothache
  21. ACETAMINOPHEN [Suspect]
     Active Substance: ACETAMINOPHEN
     Indication: Gingival pain
  22. DULOXETINE [Suspect]
     Active Substance: DULOXETINE
     Indication: Pain
  23. ETORICOXIB [Suspect]
     Active Substance: ETORICOXIB
     Indication: Pain
  24. TRAZODONE [Suspect]
     Active Substance: TRAZODONE HYDROCHLORIDE
     Indication: Pain
  25. METAMIZOLE [Suspect]
     Active Substance: METAMIZOLE
     Indication: Gingival pain
  26. METAMIZOLE [Suspect]
     Active Substance: METAMIZOLE
     Indication: Toothache
  27. OXYCODONE HYDROCHLORIDE [Suspect]
     Active Substance: OXYCODONE HYDROCHLORIDE
     Indication: Toothache
  28. OXYCODONE HYDROCHLORIDE [Suspect]
     Active Substance: OXYCODONE HYDROCHLORIDE
     Indication: Analgesic therapy
  29. LIDOCAINE HYDROCHLORIDE [Suspect]
     Active Substance: LIDOCAINE HYDROCHLORIDE
     Indication: Toothache
  30. LIDOCAINE HYDROCHLORIDE [Suspect]
     Active Substance: LIDOCAINE HYDROCHLORIDE
  31. IPIDACRINE [Suspect]
     Active Substance: IPIDACRINE
     Indication: Product used for unknown indication
  32. IPIDACRINE [Suspect]
     Active Substance: IPIDACRINE
  33. KETOPROFEN [Suspect]
     Active Substance: KETOPROFEN
     Indication: Toothache
  34. KETOPROFEN [Suspect]
     Active Substance: KETOPROFEN
     Indication: Analgesic therapy
  35. OXYCODONE [Concomitant]
     Active Substance: OXYCODONE
     Indication: Analgesic therapy
  36. OXYCODONE [Concomitant]
     Active Substance: OXYCODONE
     Indication: Toothache
  37. KETOPROFEN [Concomitant]
     Active Substance: KETOPROFEN
     Indication: Toothache
  38. IPIDACRINE [Concomitant]
     Active Substance: IPIDACRINE
     Indication: Product used for unknown indication

REACTIONS (10)
  - Toothache [Recovering/Resolving]
  - Hyperaesthesia [Recovered/Resolved]
  - Central pain syndrome [Recovered/Resolved]
  - Teething [Recovered/Resolved]
  - Dry mouth [Unknown]
  - Somnolence [Unknown]
  - Drug ineffective [Unknown]
  - Drug interaction [Unknown]
  - Off label use [Unknown]
  - Gingival pain [Recovering/Resolving]
